FAERS Safety Report 10626086 (Version 1)
Quarter: 2014Q4

REPORT INFORMATION
  Report Type: Spontaneous
  Country: US (occurrence: US)
  Receive Date: 20141204
  Receipt Date: 20141204
  Transmission Date: 20150529
  Serious: Yes (Death, Other)
  Sender: FDA-Public Use
  Company Number: US-ELI_LILLY_AND_COMPANY-US201412000948

PATIENT
  Sex: Female

DRUGS (1)
  1. HUMALOG [Suspect]
     Active Substance: INSULIN LISPRO
     Indication: PRODUCT USED FOR UNKNOWN INDICATION
     Dosage: 500 U, SINGLE
     Route: 065
     Dates: start: 20141129, end: 20141129

REACTIONS (2)
  - Wrong patient received medication [Unknown]
  - Completed suicide [Fatal]

NARRATIVE: CASE EVENT DATE: 20141129
